FAERS Safety Report 8232608-X (Version None)
Quarter: 2012Q1

REPORT INFORMATION
  Report Type: 
  Country: None (occurrence: None)
  Receive Date: 20120323
  Receipt Date: 20120315
  Transmission Date: 20120608
  Serious: Yes (Hospitalization, Other)
  Sender: FDA-Public Use
  Company Number: US-ABBOTT-12P-163-0915145-00

PATIENT
  Sex: Male

DRUGS (3)
  1. HUMIRA [Suspect]
     Indication: PSORIASIS
     Dates: start: 20111001, end: 20111101
  2. BENICAR [Concomitant]
     Indication: HYPERTENSION
  3. INH [Concomitant]
     Indication: TUBERCULIN TEST POSITIVE

REACTIONS (7)
  - IMMUNODEFICIENCY [None]
  - PYREXIA [None]
  - HEADACHE [None]
  - PHOTOSENSITIVITY REACTION [None]
  - VOMITING [None]
  - MENINGITIS ASEPTIC [None]
  - NAUSEA [None]
